FAERS Safety Report 13033754 (Version 1)
Quarter: 2016Q4

REPORT INFORMATION
  Report Type: Spontaneous
  Country: CN (occurrence: CN)
  Receive Date: 20161216
  Receipt Date: 20161216
  Transmission Date: 20170207
  Serious: Yes (Other)
  Sender: FDA-Public Use
  Company Number: CN-009507513-1612CHN007404

PATIENT
  Age: 24 Year
  Sex: Female

DRUGS (1)
  1. MARVELON [Suspect]
     Active Substance: DESOGESTREL\ETHINYL ESTRADIOL
     Dosage: UNK
     Dates: start: 2016

REACTIONS (1)
  - Uterine haemorrhage [Unknown]

NARRATIVE: CASE EVENT DATE: 20161207
